FAERS Safety Report 23338314 (Version 1)
Quarter: 2023Q4

REPORT INFORMATION
  Report Type: Spontaneous
  Country: GB (occurrence: GB)
  Receive Date: 20231226
  Receipt Date: 20231226
  Transmission Date: 20240110
  Serious: Yes (Other)
  Sender: FDA-Public Use
  Company Number: GB-SAMSUNG BIOEPIS-SB-2023-33386

PATIENT
  Age: 26 Year
  Sex: Female

DRUGS (2)
  1. IMRALDI [Suspect]
     Active Substance: ADALIMUMAB
     Indication: Crohn^s disease
     Dosage: 40 MG/0.8 ML;
     Route: 058
  2. METRONIDAZOLE [Suspect]
     Active Substance: METRONIDAZOLE
     Indication: Pelvic inflammatory disease
     Dosage: UNKNOWN
     Route: 065

REACTIONS (6)
  - Thyroid cancer [Unknown]
  - Pelvic inflammatory disease [Unknown]
  - Crohn^s disease [Unknown]
  - Injection site pain [Unknown]
  - Fear of injection [Unknown]
  - Arthralgia [Unknown]
